FAERS Safety Report 5191498-2 (Version None)
Quarter: 2006Q4

REPORT INFORMATION
  Report Type: 
  Country: None (occurrence: None)
  Receive Date: 20061226
  Receipt Date: 20061214
  Transmission Date: 20070319
  Serious: Yes (Death, Hospitalization, Other)
  Sender: FDA-Public Use
  Company Number: US-PURDUE-USA_2006_0025996

PATIENT
  Age: 77 Year
  Sex: Male

DRUGS (11)
  1. OXYCONTIN [Suspect]
     Indication: DRUG USE FOR UNKNOWN INDICATION
  2. OXYCODONE HCL [Suspect]
     Indication: PAIN
     Dosage: 5 MG, PRN
     Dates: start: 20050909, end: 20051113
  3. COUMADIN [Concomitant]
     Dates: start: 20010601, end: 20051113
  4. TRAZODONE HCL [Concomitant]
     Dates: start: 20050715, end: 20051113
  5. SODIUM CHLORIDE [Concomitant]
     Dates: start: 20050915, end: 20051025
  6. VISTARIL [Concomitant]
     Dosage: UNK, UNK
     Dates: start: 20050812, end: 20051113
  7. SENOKOT [Concomitant]
     Dates: start: 20051025, end: 20051113
  8. LASIX [Concomitant]
     Dates: start: 20051018, end: 20051113
  9. HYDROCHLOROTHIAZIDE [Concomitant]
     Dates: start: 20010601, end: 20051113
  10. IPILIMUMAB [Suspect]
     Indication: MALIGNANT MELANOMA
     Route: 042
     Dates: start: 20051025, end: 20051025
  11. BMS 734019 (MDX 1379) (BMS734019-INVESTIGATIONAL) [Suspect]
     Indication: MALIGNANT MELANOMA
     Route: 058
     Dates: start: 20051025, end: 20051025

REACTIONS (18)
  - AGGRESSION [None]
  - CARDIOMEGALY [None]
  - CONFUSIONAL STATE [None]
  - DEHYDRATION [None]
  - DELIRIUM [None]
  - DILATATION ATRIAL [None]
  - EJECTION FRACTION DECREASED [None]
  - ELECTROCARDIOGRAM Q WAVE ABNORMAL [None]
  - FALL [None]
  - HEART RATE INCREASED [None]
  - MALIGNANT NEOPLASM PROGRESSION [None]
  - OEDEMA PERIPHERAL [None]
  - PERICARDIAL EFFUSION [None]
  - PITTING OEDEMA [None]
  - PULMONARY HYPERTENSION [None]
  - URINARY RETENTION [None]
  - VENTRICULAR EXTRASYSTOLES [None]
  - WHITE BLOOD CELL COUNT INCREASED [None]
